FAERS Safety Report 8127818-6 (Version None)
Quarter: 2012Q1

REPORT INFORMATION
  Report Type: 
  Country: None (occurrence: None)
  Receive Date: 20120210
  Receipt Date: 20120109
  Transmission Date: 20120608
  Serious: No
  Sender: FDA-Public Use
  Company Number: US-GLAXOSMITHKLINE-A0894357A

PATIENT
  Sex: Male

DRUGS (4)
  1. PAROXETINE [Suspect]
     Indication: DEPRESSION
     Route: 065
  2. PAXIL [Suspect]
     Indication: ELECTROLYTE IMBALANCE
     Route: 048
  3. PAROXETINE [Suspect]
     Route: 065
  4. PAROXETINE [Suspect]
     Route: 065

REACTIONS (8)
  - CHANGE OF BOWEL HABIT [None]
  - DRUG INTOLERANCE [None]
  - BLADDER DISORDER [None]
  - GASTRIC DISORDER [None]
  - FLATULENCE [None]
  - SLEEP DISORDER [None]
  - INSOMNIA [None]
  - ABDOMINAL DISTENSION [None]
